FAERS Safety Report 9221794 (Version 1)
Quarter: 2013Q2

REPORT INFORMATION
  Report Type: Spontaneous
  Country: US (occurrence: US)
  Receive Date: 20130410
  Receipt Date: 20130410
  Transmission Date: 20140414
  Serious: Yes (Other)
  Sender: FDA-Public Use
  Company Number: US-SANOFI-AVENTIS-2013SA036410

PATIENT
  Age: 55 Year
  Sex: Female

DRUGS (5)
  1. LANTUS [Suspect]
  2. LANTUS SOLOSTAR [Suspect]
     Indication: TYPE 2 DIABETES MELLITUS
     Dosage: START DATE: OVER 4 YEARS
     Route: 051
  3. SOLOSTAR [Suspect]
     Indication: TYPE 2 DIABETES MELLITUS
  4. NOVOLOG [Suspect]
  5. PLAVIX [Concomitant]

REACTIONS (6)
  - Myocardial infarction [Unknown]
  - Carpal tunnel syndrome [Unknown]
  - Arthritis [Not Recovered/Not Resolved]
  - Visual impairment [Not Recovered/Not Resolved]
  - Blood glucose abnormal [Not Recovered/Not Resolved]
  - Underdose [Unknown]
